FAERS Safety Report 7041861-X (Version None)
Quarter: 2010Q4

REPORT INFORMATION
  Report Type: 
  Country: None (occurrence: None)
  Receive Date: 20101007
  Receipt Date: 20100930
  Transmission Date: 20110411
  Serious: Yes (Disabling)
  Sender: FDA-Public Use
  Company Number: 2010MA003218

PATIENT
  Age: 50 Year
  Sex: Female

DRUGS (10)
  1. EPIRUBICIN HYDROCHLORIDE [Suspect]
     Indication: BREAST CANCER
     Dosage: 192 MG;IV
     Route: 042
     Dates: start: 20090828, end: 20091030
  2. CYCLOPHOSPHAMIDE [Suspect]
     Indication: BREAST CANCER
     Dosage: IV
     Route: 042
     Dates: start: 20091120, end: 20100219
  3. METHOTREXATE [Suspect]
     Indication: BREAST CANCER
     Dosage: IV
     Route: 042
     Dates: start: 20091120, end: 20100219
  4. FLUOROURACIL [Suspect]
     Dosage: IV
     Route: 042
     Dates: start: 20091120, end: 20100219
  5. TAMOXIFEN CITRATE [Concomitant]
  6. APREPITANT [Concomitant]
  7. CYCLIZINE [Concomitant]
  8. ONDANSETRON [Concomitant]
  9. DEXAMETHASONE [Concomitant]
  10. LORAZEPAM [Concomitant]

REACTIONS (1)
  - DEAFNESS NEUROSENSORY [None]
